FAERS Safety Report 7590863-3 (Version None)
Quarter: 2011Q3

REPORT INFORMATION
  Report Type: 
  Country: None (occurrence: None)
  Receive Date: 20110705
  Receipt Date: 20110623
  Transmission Date: 20111222
  Serious: Yes (Hospitalization, Other)
  Sender: FDA-Public Use
  Company Number: PHHY2010IL88536

PATIENT
  Age: 6 Year
  Sex: Male

DRUGS (2)
  1. EXJADE [Suspect]
     Indication: THALASSAEMIA
     Dosage: 34 MG/KG, DAILY
     Route: 048
     Dates: start: 20070101, end: 20110608
  2. EXJADE [Suspect]
     Indication: IRON OVERLOAD

REACTIONS (14)
  - HYPOGLYCAEMIA [None]
  - SNEEZING [None]
  - ENCEPHALOPATHY [None]
  - HYPERAMMONAEMIA [None]
  - AMINO ACID LEVEL INCREASED [None]
  - LOSS OF CONSCIOUSNESS [None]
  - CONFUSIONAL STATE [None]
  - URINARY TRACT INFECTION [None]
  - GAIT DISTURBANCE [None]
  - BLOOD CHLORIDE INCREASED [None]
  - CONVULSION [None]
  - MENTAL STATUS CHANGES [None]
  - LIVER INJURY [None]
  - SPLENOMEGALY [None]
